FAERS Safety Report 9157791 (Version 1)
Quarter: 2013Q1

REPORT INFORMATION
  Report Type: Spontaneous
  Country: US (occurrence: None)
  Receive Date: 20130311
  Receipt Date: 20130311
  Transmission Date: 20140127
  Serious: Yes (Other)
  Sender: FDA-Public Use
  Company Number: None

PATIENT
  Sex: Male
  Weight: 99.79 kg

DRUGS (2)
  1. EFFIENT 10 MG ELI LILLY + CO [Suspect]
     Indication: MYOCARDIAL INFARCTION
     Dosage: ONE TIME 10MG DAILY
     Dates: start: 20130208, end: 20130313
  2. EFFIENT 10 MG ELI LILLY + CO [Suspect]
     Indication: MYOCARDIAL INFARCTION
     Dosage: ONE TIME 10MG DAILY
     Dates: start: 20130208, end: 20130313

REACTIONS (1)
  - Haemoptysis [None]
